FAERS Safety Report 14665803 (Version 2)
Quarter: 2018Q1

REPORT INFORMATION
  Report Type: Spontaneous
  Country: ES (occurrence: ES)
  Receive Date: 20180321
  Receipt Date: 20180323
  Transmission Date: 20180509
  Serious: Yes (Hospitalization)
  Sender: FDA-Public Use
  Company Number: ES-PFIZER INC-2018106607

PATIENT
  Age: 64 Year
  Sex: Male

DRUGS (3)
  1. PACLITAXEL HOSPIRA [Suspect]
     Active Substance: PACLITAXEL
     Indication: ADENOCARCINOMA GASTRIC
     Dosage: 137 MG (80 MG / M2) ON DAYS 1 AND 8
     Route: 042
     Dates: start: 20150201
  2. FILGRASTIM [Suspect]
     Active Substance: FILGRASTIM
     Indication: ADENOCARCINOMA GASTRIC
     Dosage: 300 UG, WEEKLY
     Route: 058
     Dates: start: 20150301
  3. RAMUCIRUMAB [Suspect]
     Active Substance: RAMUCIRUMAB
     Indication: ADENOCARCINOMA GASTRIC
     Dosage: 496 MG, (8 MG / KG)
     Route: 042
     Dates: start: 20150101

REACTIONS (5)
  - Rectal haemorrhage [Unknown]
  - Abdominal pain [Unknown]
  - Intestinal fistula [Unknown]
  - Pyrexia [Unknown]
  - Splenic rupture [Unknown]

NARRATIVE: CASE EVENT DATE: 20150101
